FAERS Safety Report 21556709 (Version 2)
Quarter: 2022Q4

REPORT INFORMATION
  Report Type: Report from Study
  Country: KR (occurrence: KR)
  Receive Date: 20221104
  Receipt Date: 20221117
  Transmission Date: 20230112
  Serious: Yes (Life-Threatening, Hospitalization, Other)
  Sender: FDA-Public Use
  Company Number: KR-BRISTOL-MYERS SQUIBB COMPANY-2022-132555

PATIENT
  Age: 54 Year
  Sex: Male
  Weight: 61.3 kg

DRUGS (3)
  1. IPILIMUMAB [Suspect]
     Active Substance: IPILIMUMAB
     Indication: Gastric cancer
     Dosage: MOST RECENT DOSE ON 07-OCT-2022
     Route: 042
     Dates: start: 20220518
  2. CAPECITABINE [Suspect]
     Active Substance: CAPECITABINE
     Indication: Gastric cancer
     Dosage: LAST ADMINISTRATION DATE WAS 07-OCT-2022,
     Route: 048
     Dates: start: 20220519, end: 20221007
  3. OXALIPLATIN [Suspect]
     Active Substance: OXALIPLATIN
     Indication: Gastric cancer
     Dosage: MOST RECENT DOSE ON 17-OCT-2022.
     Route: 065
     Dates: start: 20220518

REACTIONS (1)
  - Sepsis [Not Recovered/Not Resolved]

NARRATIVE: CASE EVENT DATE: 20221031
